FAERS Safety Report 9787760 (Version 1)
Quarter: 2013Q4

REPORT INFORMATION
  Report Type: Spontaneous
  Country: GB (occurrence: GB)
  Receive Date: 20131230
  Receipt Date: 20131230
  Transmission Date: 20140711
  Serious: Yes (Hospitalization, Disabling)
  Sender: FDA-Public Use
  Company Number: GB-ASTRAZENECA-2013SE93212

PATIENT
  Age: 53 Year
  Sex: 0

DRUGS (2)
  1. OMEPRAZOLE [Suspect]
     Route: 048
  2. TAZOCIN [Suspect]
     Indication: PANCREATITIS NECROTISING
     Route: 042
     Dates: start: 20111223, end: 20111230

REACTIONS (1)
  - Clostridium difficile infection [Recovered/Resolved]
